FAERS Safety Report 8880973 (Version 1)
Quarter: 2012Q4

REPORT INFORMATION
  Report Type: 
  Country: SE (occurrence: SE)
  Receive Date: 20121101
  Receipt Date: 20121101
  Transmission Date: 20130627
  Serious: Yes (Hospitalization)
  Sender: FDA-Public Use
  Company Number: SE-PFIZER INC-2012267735

PATIENT
  Age: 39 Year
  Sex: Male
  Weight: 78 kg

DRUGS (7)
  1. GENOTROPIN [Suspect]
     Indication: GROWTH HORMONE DEFICIENCY
     Dosage: 0.8 mg, 7/wk
     Route: 058
     Dates: start: 20060111
  2. MINRIN [Concomitant]
     Indication: ADH DECREASED
     Dosage: UNK
     Dates: start: 19980407
  3. LEVOTHYROXINE [Concomitant]
     Indication: TSH DECREASED
     Dosage: UNK
     Dates: start: 19970501
  4. LEVOTHYROXINE [Concomitant]
     Indication: PRIMARY HYPOTHYROIDISM
  5. TESTOGEL [Concomitant]
     Indication: LH BLOOD DECREASED
     Dosage: UNK
     Dates: start: 20050115
  6. TESTOGEL [Concomitant]
     Indication: FSH DECREASED
  7. TESTOGEL [Concomitant]
     Indication: TESTICULAR HYPOGONADISM

REACTIONS (1)
  - Arthropathy [Unknown]
